APPROVED DRUG PRODUCT: VARENICLINE TARTRATE
Active Ingredient: VARENICLINE TARTRATE
Strength: EQ 1MG BASE
Dosage Form/Route: TABLET;ORAL
Application: A213268 | Product #002
Applicant: RHODES PHARMACEUTICALS LP
Approved: May 21, 2025 | RLD: No | RS: No | Type: DISCN